FAERS Safety Report 21547578 (Version 2)
Quarter: 2024Q4

REPORT INFORMATION
  Report Type: Report from Study
  Country: CA (occurrence: CA)
  Receive Date: 20221103
  Receipt Date: 20241101
  Transmission Date: 20250115
  Serious: Yes (Other)
  Sender: TAKEDA
  Company Number: CA-TAKEDA-2022TUS080027

PATIENT
  Sex: Female

DRUGS (3)
  1. VEDOLIZUMAB [Suspect]
     Active Substance: VEDOLIZUMAB
     Indication: Crohn^s disease
     Dosage: 300 MILLIGRAM
     Route: 042
     Dates: start: 20211215
  2. VEDOLIZUMAB [Suspect]
     Active Substance: VEDOLIZUMAB
     Indication: Crohn^s disease
     Dosage: 108 MILLIGRAM, Q2WEEKS
     Route: 058
     Dates: start: 20220323
  3. HULIO [Concomitant]
     Active Substance: ADALIMUMAB-FKJP
     Dosage: UNK

REACTIONS (5)
  - Crohn^s disease [Unknown]
  - Intestinal anastomosis complication [Unknown]
  - Arthritis [Unknown]
  - Mouth ulceration [Unknown]
  - Arthralgia [Unknown]
